FAERS Safety Report 9842384 (Version 6)
Quarter: 2015Q4

REPORT INFORMATION
  Report Type: Spontaneous
  Country: JP (occurrence: JP)
  Receive Date: 20140124
  Receipt Date: 20151014
  Transmission Date: 20160305
  Serious: Yes (Death, Other)
  Sender: FDA-Public Use
  Company Number: JP-BRISTOL-MYERS SQUIBB COMPANY-19923374

PATIENT
  Age: 60 Year
  Sex: Male
  Weight: 50 kg

DRUGS (9)
  1. ERBITUX [Suspect]
     Active Substance: CETUXIMAB
     Indication: TONGUE NEOPLASM MALIGNANT STAGE UNSPECIFIED
     Dosage: 250 MG/M2, UNK
     Route: 041
     Dates: start: 20130919, end: 20131126
  2. OXYCONTIN [Concomitant]
     Active Substance: OXYCODONE HYDROCHLORIDE
     Dosage: 50 MG, BID
     Route: 048
     Dates: end: 20131201
  3. DEXART [Concomitant]
     Active Substance: DEXAMETHASONE SODIUM PHOSPHATE
     Indication: PROPHYLAXIS
     Dosage: 9.9 MG, QWK
     Route: 041
     Dates: start: 20130919, end: 20131126
  4. CONSTAN                            /00384601/ [Concomitant]
     Indication: PSYCHOSOMATIC DISEASE
     Dosage: 0.4 MG, QD
     Route: 048
     Dates: start: 20130822, end: 20131201
  5. SALAGEN [Concomitant]
     Active Substance: PILOCARPINE HYDROCHLORIDE
     Indication: DRY MOUTH
     Dosage: 2.5 MG  TABS
     Route: 048
     Dates: start: 20130919, end: 20131201
  6. OXYCONTIN [Concomitant]
     Active Substance: OXYCODONE HYDROCHLORIDE
     Indication: CANCER PAIN
     Dosage: 5 MG, BID
     Route: 048
     Dates: start: 20130813
  7. POLARAMINE [Concomitant]
     Active Substance: DEXCHLORPHENIRAMINE MALEATE
     Indication: PROPHYLAXIS
     Dosage: 5 MG, QWK
     Route: 041
     Dates: start: 20130919, end: 20131126
  8. MINOPEN [Concomitant]
     Active Substance: MINOCYCLINE HYDROCHLORIDE
     Indication: PROPHYLAXIS
     Dosage: TABS
     Route: 048
     Dates: start: 20130919, end: 20131201
  9. LYRICA [Concomitant]
     Active Substance: PREGABALIN
     Indication: PAIN
     Dosage: CAPS
     Route: 048
     Dates: start: 20130919, end: 20131201

REACTIONS (3)
  - Skin reaction [Not Recovered/Not Resolved]
  - Pneumonia [Fatal]
  - Acute respiratory distress syndrome [Fatal]

NARRATIVE: CASE EVENT DATE: 20130930
